FAERS Safety Report 4500774-5 (Version None)
Quarter: 2004Q4

REPORT INFORMATION
  Report Type: 
  Country: None (occurrence: None)
  Receive Date: 20041112
  Receipt Date: 20041112
  Transmission Date: 20050328
  Serious: Yes (Other)
  Sender: FDA-Public Use
  Company Number: None

PATIENT
  Sex: Male
  Weight: 81.6475 kg

DRUGS (6)
  1. GABAPENTIN [Suspect]
     Indication: TRIGEMINAL NEURALGIA
     Dosage: TWO FOUR TIMES/DAY ORAL
     Route: 048
     Dates: start: 20041010, end: 20041031
  2. TEGROTOL [Concomitant]
  3. PREDNISONE [Concomitant]
  4. TRAVATAN [Concomitant]
  5. VOLTAREN [Concomitant]
  6. AVONEX [Concomitant]

REACTIONS (5)
  - CONDITION AGGRAVATED [None]
  - FEEDING DISORDER [None]
  - PHARMACEUTICAL PRODUCT COMPLAINT [None]
  - SPEECH DISORDER [None]
  - TRIGEMINAL NEURALGIA [None]
